FAERS Safety Report 6332861-3 (Version None)
Quarter: 2009Q3

REPORT INFORMATION
  Report Type: 
  Country: None (occurrence: None)
  Receive Date: 20090828
  Receipt Date: 20090820
  Transmission Date: 20100115
  Serious: Yes (Hospitalization, Disabling, Other)
  Sender: FDA-Public Use
  Company Number: US-ROXANE LABORATORIES, INC.-2009-RO-00856RO

PATIENT
  Age: 51 Year
  Sex: Female

DRUGS (1)
  1. METHADONE [Suspect]
     Indication: FIBROMYALGIA
     Route: 048

REACTIONS (16)
  - AREFLEXIA [None]
  - ASTHENIA [None]
  - AUTOMATISM [None]
  - BALANCE DISORDER [None]
  - CATATONIA [None]
  - CEREBRAL ATROPHY [None]
  - COUGH [None]
  - DELUSION [None]
  - FAECAL INCONTINENCE [None]
  - FATIGUE [None]
  - LEUKOENCEPHALOPATHY [None]
  - MEMORY IMPAIRMENT [None]
  - MUTISM [None]
  - MYALGIA [None]
  - OVERDOSE [None]
  - URINARY INCONTINENCE [None]
